FAERS Safety Report 9995533 (Version 1)
Quarter: 2014Q1

REPORT INFORMATION
  Report Type: Spontaneous
  Country: US (occurrence: None)
  Receive Date: 20140218
  Receipt Date: 20140218
  Transmission Date: 20141002
  Serious: No
  Sender: FDA-Public Use
  Company Number: 1000052476

PATIENT
  Age: 73 Year
  Sex: Female
  Weight: 66.22 kg

DRUGS (3)
  1. VIIBRYD [Suspect]
     Indication: DEPRESSION
     Route: 048
     Dates: start: 20131207, end: 20131213
  2. LISINOPRIL [Concomitant]
  3. XANAX (ALPRAZOLAM) [Concomitant]

REACTIONS (5)
  - Hyperhidrosis [None]
  - Cold sweat [None]
  - Dizziness [None]
  - Asthenia [None]
  - Drug effect increased [None]
